FAERS Safety Report 6864180-0 (Version None)
Quarter: 2010Q3

REPORT INFORMATION
  Report Type: 
  Country: None (occurrence: None)
  Receive Date: 20100721
  Receipt Date: 20080313
  Transmission Date: 20110219
  Serious: No
  Sender: FDA-Public Use
  Company Number: US-PFIZER INC-2008025266

PATIENT
  Sex: Male
  Weight: 93 kg

DRUGS (6)
  1. CHANTIX [Suspect]
     Indication: SMOKING CESSATION THERAPY
     Dates: start: 20080201
  2. LOVASTATIN [Concomitant]
     Indication: CORONARY ARTERY BYPASS
  3. ACETYLSALICYLIC ACID [Concomitant]
  4. CYCLOBENZAPRINE [Concomitant]
     Indication: CLAVICLE FRACTURE
  5. TYLENOL [Concomitant]
     Indication: OSTEOARTHRITIS
  6. TYLENOL [Concomitant]
     Indication: PAIN

REACTIONS (5)
  - ABNORMAL DREAMS [None]
  - INSOMNIA [None]
  - NAUSEA [None]
  - RENAL IMPAIRMENT [None]
  - VOMITING [None]
